FAERS Safety Report 9297943 (Version 1)
Quarter: 2013Q2

REPORT INFORMATION
  Report Type: Spontaneous
  Country: US (occurrence: US)
  Receive Date: 20130520
  Receipt Date: 20130520
  Transmission Date: 20140414
  Serious: Yes (Hospitalization)
  Sender: FDA-Public Use
  Company Number: US-PFIZER INC-2013151168

PATIENT
  Age: 72 Year
  Sex: Female

DRUGS (3)
  1. SUTENT [Suspect]
     Indication: THYROID CANCER
     Dosage: 12.5 MG, UNK
     Dates: start: 20111116
  2. CITALOPRAM HYDROBROMIDE [Concomitant]
     Dosage: UNK
  3. SYNTHROID [Concomitant]
     Dosage: UNK

REACTIONS (2)
  - Tracheal disorder [Unknown]
  - Off label use [Unknown]
